FAERS Safety Report 8737494 (Version 3)
Quarter: 2013Q4

REPORT INFORMATION
  Report Type: Report from Study
  Country: US (occurrence: US)
  Receive Date: 20120822
  Receipt Date: 20131031
  Transmission Date: 20140711
  Serious: Yes (Other)
  Sender: FDA-Public Use
  Company Number: US-009507513-1208USA002213

PATIENT
  Age: 30 Year
  Sex: Female

DRUGS (2)
  1. CLARITIN-D-12 [Suspect]
     Dosage: UNK
     Dates: start: 20120602, end: 20120714
  2. CLARITIN ALLERGY AND SINUS [Suspect]
     Dosage: UNK
     Dates: start: 20120602, end: 20120714

REACTIONS (1)
  - Abortion spontaneous [Recovered/Resolved]
